FAERS Safety Report 9330329 (Version 1)
Quarter: 2013Q2

REPORT INFORMATION
  Report Type: Report from Study
  Country: NL (occurrence: NL)
  Receive Date: 20130605
  Receipt Date: 20130605
  Transmission Date: 20140414
  Serious: Yes (Hospitalization)
  Sender: FDA-Public Use
  Company Number: NL-ROCHE-1232238

PATIENT
  Age: 67 Year
  Sex: Female

DRUGS (4)
  1. BEVACIZUMAB [Suspect]
     Indication: BREAST CANCER METASTATIC
     Route: 042
     Dates: start: 20110928, end: 20111207
  2. PACLITAXEL [Suspect]
     Indication: BREAST CANCER METASTATIC
     Route: 042
     Dates: start: 20110928, end: 20111207
  3. PACLITAXEL [Suspect]
     Route: 042
  4. PERINDOPRIL [Concomitant]
     Route: 065
     Dates: start: 20111026

REACTIONS (1)
  - Dysphagia [Recovered/Resolved]
